FAERS Safety Report 4382340-8 (Version None)
Quarter: 2004Q2

REPORT INFORMATION
  Report Type: 
  Country: None (occurrence: None)
  Receive Date: 20040615
  Receipt Date: 20040604
  Transmission Date: 20050107
  Serious: Yes (Death)
  Sender: FDA-Public Use
  Company Number: S04-USA-01549-01

PATIENT
  Age: 79 Year
  Sex: Female
  Weight: 81.3753 kg

DRUGS (11)
  1. NAMENDA [Suspect]
     Indication: DEMENTIA
     Dates: start: 20040126, end: 20040201
  2. NAMENDA [Suspect]
     Indication: DEMENTIA
     Dosage: 5 MG BID PO
     Route: 048
     Dates: start: 20040202, end: 20040204
  3. LORAZEPAM [Concomitant]
  4. DIPYRIDAMOLE [Concomitant]
  5. ASPIRIN [Concomitant]
  6. ATENOLOL [Concomitant]
  7. HYDROCHLOROTHIAZIDE [Concomitant]
  8. KLONOPIN [Concomitant]
  9. MIRTAZAPINE [Concomitant]
  10. CALCIUM WITH VITAMIN D [Concomitant]
  11. SORBITOL SOLUTION (SORBITOL) [Concomitant]

REACTIONS (11)
  - ANAEMIA [None]
  - BLOOD GLUCOSE INCREASED [None]
  - BLOOD PRESSURE DIASTOLIC DECREASED [None]
  - CEREBROVASCULAR ACCIDENT [None]
  - COMA [None]
  - DISEASE RECURRENCE [None]
  - ELECTROCARDIOGRAM ST SEGMENT ABNORMAL [None]
  - HYPOKALAEMIA [None]
  - PLATELET COUNT DECREASED [None]
  - RESPIRATORY RATE INCREASED [None]
  - URINARY TRACT INFECTION [None]
